FAERS Safety Report 24667472 (Version 2)
Quarter: 2024Q4

REPORT INFORMATION
  Report Type: Spontaneous
  Country: US (occurrence: US)
  Receive Date: 20241126
  Receipt Date: 20241128
  Transmission Date: 20250114
  Serious: No
  Sender: PURDUE
  Company Number: US-PURDUE PHARMA-USA-2024-0313510

PATIENT
  Sex: Female
  Weight: 65.77 kg

DRUGS (7)
  1. OXYCONTIN [Suspect]
     Active Substance: OXYCODONE HYDROCHLORIDE
     Indication: Pain
     Dosage: 30 MILLIGRAM, TID (ONE TABLET IN MORNING AND 2  TABLETS AT NIGHT.)
     Route: 048
     Dates: start: 2000
  2. OXYCONTIN [Suspect]
     Active Substance: OXYCODONE HYDROCHLORIDE
     Indication: Pain management
     Dosage: 30 MILLIGRAM (1 IN THE MORNING AND 2 AT NIGHT)
     Route: 048
  3. OXYCODONE HYDROCHLORIDE [Suspect]
     Active Substance: OXYCODONE HYDROCHLORIDE
     Indication: Product used for unknown indication
     Dosage: 10MG 4X A DAY
     Route: 048
  4. OXYCODONE HYDROCHLORIDE [Suspect]
     Active Substance: OXYCODONE HYDROCHLORIDE
     Dosage: 10 MILLIGRAM
     Route: 048
  5. HYDROCODONE BITARTRATE [Suspect]
     Active Substance: HYDROCODONE BITARTRATE
     Indication: Product used for unknown indication
     Dosage: UNK
     Route: 065
  6. OMEPRAZOLE [Concomitant]
     Active Substance: OMEPRAZOLE
     Indication: Dyspepsia
     Dosage: ONCE DAILY
     Route: 065
  7. LYRICA [Concomitant]
     Active Substance: PREGABALIN
     Indication: Neuralgia
     Dosage: 75 MILLIGRAM, TID
     Route: 065

REACTIONS (3)
  - Drug screen positive [Not Recovered/Not Resolved]
  - Product use issue [Not Recovered/Not Resolved]
  - Product identification number issue [Not Recovered/Not Resolved]
